FAERS Safety Report 4887754-5 (Version None)
Quarter: 2006Q1

REPORT INFORMATION
  Report Type: 
  Country: None (occurrence: None)
  Receive Date: 20060123
  Receipt Date: 20050426
  Transmission Date: 20060701
  Serious: Yes (Death)
  Sender: FDA-Public Use
  Company Number: 2005GB00827

PATIENT
  Age: 24854 Day
  Sex: Female
  Weight: 56.5 kg

DRUGS (7)
  1. CRESTOR [Suspect]
     Indication: HYPERCHOLESTEROLAEMIA
     Route: 048
     Dates: start: 20030904
  2. ASPIRIN [Concomitant]
     Indication: MYOCARDIAL ISCHAEMIA
     Route: 048
     Dates: start: 20000101
  3. ISMN [Concomitant]
     Indication: MYOCARDIAL ISCHAEMIA
     Route: 048
     Dates: start: 20000101
  4. CANDESARTAN [Concomitant]
     Indication: MYOCARDIAL ISCHAEMIA
     Route: 048
     Dates: start: 20000101
  5. ATENOLOL [Concomitant]
     Indication: MYOCARDIAL ISCHAEMIA
     Route: 048
     Dates: start: 20000101
  6. CARBOPLATIN [Concomitant]
     Indication: MALIGNANT PALATE NEOPLASM
     Dates: start: 20050101
  7. RADIOTHERAPY [Concomitant]
     Indication: MALIGNANT PALATE NEOPLASM
     Dates: start: 20050101

REACTIONS (5)
  - ACUTE MYOCARDIAL INFARCTION [None]
  - CORONARY ARTERY DISEASE [None]
  - INFARCTION [None]
  - ORAL NEOPLASM [None]
  - THROAT CANCER [None]
